FAERS Safety Report 10688584 (Version 2)
Quarter: 2015Q1

REPORT INFORMATION
  Report Type: Spontaneous
  Country: FR (occurrence: FR)
  Receive Date: 20150102
  Receipt Date: 20150102
  Transmission Date: 20150720
  Serious: Yes (Other)
  Sender: FDA-Public Use
  Company Number: FR-009507513-1412FRA004268

PATIENT
  Age: 46 Year
  Sex: Female

DRUGS (2)
  1. REYATAZ [Suspect]
     Active Substance: ATAZANAVIR SULFATE
     Indication: HIV INFECTION
     Dosage: 400 MG, QD
     Dates: start: 20090830
  2. ISENTRESS [Suspect]
     Active Substance: RALTEGRAVIR POTASSIUM
     Indication: HIV INFECTION
     Dosage: 400 MG, BID
     Dates: start: 20090830, end: 20100611

REACTIONS (2)
  - Myositis [Recovering/Resolving]
  - Virologic failure [Unknown]

NARRATIVE: CASE EVENT DATE: 200909
